FAERS Safety Report 8855126 (Version 1)
Quarter: 2012Q4

REPORT INFORMATION
  Report Type: 
  Country: US (occurrence: US)
  Receive Date: 20121023
  Receipt Date: 20121023
  Transmission Date: 20130627
  Serious: No
  Sender: FDA-Public Use
  Company Number: US-ASTRAZENECA-2012SE77277

PATIENT
  Age: 87 Year
  Sex: Male

DRUGS (1)
  1. BUDESONIDE [Suspect]
     Indication: COLITIS
     Route: 048

REACTIONS (5)
  - Rash pustular [Unknown]
  - Acne [Unknown]
  - Contusion [Unknown]
  - Rash macular [Unknown]
  - Off label use [Unknown]
